FAERS Safety Report 10582355 (Version 1)
Quarter: 2014Q4

REPORT INFORMATION
  Report Type: Spontaneous
  Country: DK (occurrence: DE)
  Receive Date: 20141113
  Receipt Date: 20141113
  Transmission Date: 20150529
  Serious: Yes (Congenital Anomaly, Other)
  Sender: FDA-Public Use
  Company Number: DE-FRI-1000072315

PATIENT
  Age: 1 Day
  Sex: Male
  Weight: 3 kg

DRUGS (5)
  1. AMITRIPTYLINE-FORM-UNKNOWN [Concomitant]
     Indication: DEPRESSION
     Route: 064
  2. CITALOPRAM [Suspect]
     Active Substance: CITALOPRAM HYDROBROMIDE
     Indication: DEPRESSION
     Route: 064
     Dates: start: 20120929, end: 20130607
  3. QUETIAPINE [Suspect]
     Active Substance: QUETIAPINE
     Indication: DEPRESSION
     Route: 064
     Dates: start: 20120929, end: 20130607
  4. MIRTAZAPINE. [Suspect]
     Active Substance: MIRTAZAPINE
     Indication: DEPRESSION
     Route: 064
     Dates: start: 20120929, end: 20130607
  5. INSULIN [Concomitant]
     Active Substance: INSULIN NOS
     Indication: GESTATIONAL DIABETES
     Route: 064

REACTIONS (8)
  - Neonatal respiratory distress syndrome [Recovered/Resolved]
  - Agitation neonatal [Recovered/Resolved]
  - Cerebral haemorrhage foetal [Not Recovered/Not Resolved]
  - Foetal exposure during pregnancy [Not Recovered/Not Resolved]
  - Apgar score low [Recovered/Resolved]
  - Feeding disorder neonatal [Recovered/Resolved]
  - Temperature regulation disorder [Recovered/Resolved]
  - Congenital cerebral cyst [Not Recovered/Not Resolved]

NARRATIVE: CASE EVENT DATE: 20120929
